FAERS Safety Report 15546208 (Version 7)
Quarter: 2019Q4

REPORT INFORMATION
  Report Type: Report from Study
  Country: EC (occurrence: EC)
  Receive Date: 20181024
  Receipt Date: 20191227
  Transmission Date: 20200122
  Serious: Yes (Other)
  Sender: FDA-Public Use
  Company Number: PHHY2018EC134235

PATIENT
  Age: 69 Year
  Sex: Female
  Weight: 63.49 kg

DRUGS (2)
  1. SANDOSTATIN LAR DEPOT [Suspect]
     Active Substance: OCTREOTIDE ACETATE
     Indication: NEUROENDOCRINE TUMOUR
     Dosage: 20 MG, QMO
     Route: 030
     Dates: start: 20160616
  2. OMECIDOL [Concomitant]
     Indication: GASTRITIS
     Dosage: 20 MG, (4 CAPSULES DAILY; 2 MORNING AND 2 AT NIGHT)
     Route: 048

REACTIONS (8)
  - Headache [Not Recovered/Not Resolved]
  - Facial paralysis [Recovering/Resolving]
  - Encephalopathy [Not Recovered/Not Resolved]
  - Tongue biting [Unknown]
  - Memory impairment [Not Recovered/Not Resolved]
  - Hemiplegia [Recovering/Resolving]
  - Deafness [Not Recovered/Not Resolved]
  - Aphasia [Unknown]

NARRATIVE: CASE EVENT DATE: 20171016
